FAERS Safety Report 5373081-9 (Version None)
Quarter: 2007Q2

REPORT INFORMATION
  Report Type: 
  Country: None (occurrence: None)
  Receive Date: 20070626
  Receipt Date: 20070615
  Transmission Date: 20071010
  Serious: Yes (Hospitalization)
  Sender: FDA-Public Use
  Company Number: 234888K07USA

PATIENT
  Age: 55 Year
  Sex: Female

DRUGS (1)
  1. REBIF [Suspect]
     Indication: MULTIPLE SCLEROSIS
     Dosage: 44 MCG, 3 IN 1 WEEKS, SUBCUTAEOUS
     Route: 058
     Dates: start: 20051017, end: 20070324

REACTIONS (5)
  - HAEMODIALYSIS [None]
  - LOSS OF CONSCIOUSNESS [None]
  - RENAL FAILURE [None]
  - SKIN DISCOLOURATION [None]
  - THROMBOSIS [None]
